FAERS Safety Report 4541104-2 (Version None)
Quarter: 2004Q4

REPORT INFORMATION
  Report Type: 
  Country: None (occurrence: None)
  Receive Date: 20041228
  Receipt Date: 20041217
  Transmission Date: 20050328
  Serious: Yes (Life-Threatening, Hospitalization)
  Sender: FDA-Public Use
  Company Number: 2004-121637-NL

PATIENT
  Age: 62 Year
  Sex: Female

DRUGS (3)
  1. MIRTAZAPINE [Suspect]
     Indication: DEPRESSION
     Dosage: ORAL
     Route: 048
     Dates: start: 20040827, end: 20040921
  2. CYAMEMAZINE [Suspect]
     Dosage: 75 MG ORAL
     Route: 048
     Dates: start: 20040920, end: 20040921
  3. LOPRAZOLAM MESILATE [Concomitant]

REACTIONS (5)
  - COMA [None]
  - CONFUSIONAL STATE [None]
  - HYPONATRAEMIA [None]
  - LUNG DISORDER [None]
  - TONIC CONVULSION [None]
